FAERS Safety Report 19634613 (Version 1)
Quarter: 2021Q3

REPORT INFORMATION
  Report Type: Spontaneous
  Country: US (occurrence: US)
  Receive Date: 20210730
  Receipt Date: 20210730
  Transmission Date: 20211014
  Serious: No
  Sender: FDA-Public Use
  Company Number: None

PATIENT
  Age: 69 Year
  Sex: Female
  Weight: 113.9 kg

DRUGS (1)
  1. CASIRIVIMAB\IMDEVIMAB [Suspect]
     Active Substance: CASIRIVIMAB\IMDEVIMAB
     Indication: COVID-19
     Dosage: ?          OTHER FREQUENCY:ONE DOSE;?
     Route: 042
     Dates: start: 20210730, end: 20210730

REACTIONS (5)
  - Blood lactic acid increased [None]
  - C-reactive protein increased [None]
  - Procalcitonin increased [None]
  - Troponin increased [None]
  - Bacterial sepsis [None]

NARRATIVE: CASE EVENT DATE: 20210730
